FAERS Safety Report 18970102 (Version 2)
Quarter: 2021Q1

REPORT INFORMATION
  Report Type: Spontaneous
  Country: SE (occurrence: SE)
  Receive Date: 20210304
  Receipt Date: 20210304
  Transmission Date: 20210420
  Serious: Yes (Other)
  Sender: FDA-Public Use
  Company Number: SE-PFIZER INC-2021198401

PATIENT
  Sex: Female
  Weight: 70 kg

DRUGS (2)
  1. PROVERA [Suspect]
     Active Substance: MEDROXYPROGESTERONE ACETATE
     Indication: INFERTILITY FEMALE
     Dosage: 1 DF, 1X/DAY
  2. CITALOPRAM [Concomitant]
     Active Substance: CITALOPRAM HYDROBROMIDE
     Dosage: 20 MG

REACTIONS (10)
  - Grief reaction [Recovered/Resolved]
  - Depressed mood [Recovered/Resolved]
  - Breast tenderness [Recovered/Resolved]
  - Suicidal ideation [Recovered/Resolved]
  - Depression [Recovered/Resolved]
  - Breast discomfort [Recovered/Resolved]
  - Weight increased [Recovered/Resolved]
  - Off label use [Unknown]
  - Anger [Recovered/Resolved]
  - Feeling of despair [Recovered/Resolved]
